FAERS Safety Report 4340554-7 (Version None)
Quarter: 2004Q2

REPORT INFORMATION
  Report Type: 
  Country: None (occurrence: None)
  Receive Date: 20040415
  Receipt Date: 20040408
  Transmission Date: 20050107
  Serious: Yes (Hospitalization)
  Sender: FDA-Public Use
  Company Number: 04-02-0251

PATIENT
  Age: 50 Year
  Sex: Male
  Weight: 86.637 kg

DRUGS (1)
  1. CLOZAPINE [Suspect]
     Indication: SCHIZOPHRENIA, UNDIFFERENTIATED TYPE
     Dosage: 400MG QHS ORAL
     Route: 048
     Dates: start: 19990701

REACTIONS (3)
  - CIRCULATORY COLLAPSE [None]
  - RESPIRATORY ARREST [None]
  - SKIN DISCOLOURATION [None]
